FAERS Safety Report 23020619 (Version 1)
Quarter: 2023Q4

REPORT INFORMATION
  Report Type: Other
  Country: None (occurrence: CA)
  Receive Date: 20231003
  Receipt Date: 20231003
  Transmission Date: 20240109
  Serious: Yes (Hospitalization, Other)
  Sender: FDA-Public Use
  Company Number: CA-Marksans Pharma Limited-2146584

PATIENT
  Sex: Female

DRUGS (3)
  1. GABAPENTIN [Suspect]
     Active Substance: GABAPENTIN
     Indication: Product used for unknown indication
     Route: 064
  2. PREDNISONE [Suspect]
     Active Substance: PREDNISONE
     Route: 064
  3. SPIRONOLACTONE [Suspect]
     Active Substance: SPIRONOLACTONE
     Route: 064

REACTIONS (5)
  - Maternal exposure during pregnancy [Unknown]
  - Syndactyly [Unknown]
  - Pulmonary aplasia [Unknown]
  - Neonatal respiratory failure [Unknown]
  - Neonatal seizure [Unknown]
